FAERS Safety Report 8549267-9 (Version None)
Quarter: 2012Q3

REPORT INFORMATION
  Report Type: 
  Country: None (occurrence: None)
  Receive Date: 20120720
  Receipt Date: 20120720
  Transmission Date: 20120928
  Serious: Yes (Other)
  Sender: FDA-Public Use
  Company Number: None

PATIENT
  Sex: Female

DRUGS (15)
  1. ACYCLOVIR [Concomitant]
  2. JANUVIA [Concomitant]
  3. METOPROLOL TARTRATE [Concomitant]
  4. PROTONIX [Concomitant]
  5. ASPIRIN [Concomitant]
  6. POTASSIUM [Concomitant]
  7. INSULIN [Concomitant]
  8. SIMVASTATIN [Concomitant]
  9. LISINOPRIL [Concomitant]
  10. LEVEMIR [Concomitant]
  11. AGGRENOX [Suspect]
     Indication: TRANSIENT ISCHAEMIC ATTACK
     Dosage: 25 MG/ 200 MG TWICE A DAY PO
     Route: 048
     Dates: start: 20120704, end: 20120719
  12. ESTRADIOL [Concomitant]
  13. SERTRALINE HYDROCHLORIDE [Concomitant]
  14. VITAMIN D [Concomitant]
  15. LEVOTHYROXINE SODIUM [Concomitant]

REACTIONS (1)
  - HEADACHE [None]
